FAERS Safety Report 7756910-0 (Version None)
Quarter: 2011Q3

REPORT INFORMATION
  Report Type: 
  Country: None (occurrence: None)
  Receive Date: 20110916
  Receipt Date: 20110913
  Transmission Date: 20111222
  Serious: Yes (Death)
  Sender: FDA-Public Use
  Company Number: US-GLAXOSMITHKLINE-A0944475A

PATIENT
  Age: 69 Year
  Sex: Male

DRUGS (2)
  1. PAIN MEDICATIONS [Concomitant]
  2. ARIXTRA [Suspect]
     Indication: EMBOLISM
     Dosage: 10MG PER DAY
     Route: 058

REACTIONS (1)
  - NEOPLASM MALIGNANT [None]
